FAERS Safety Report 19069231 (Version 1)
Quarter: 2021Q1

REPORT INFORMATION
  Report Type: Spontaneous
  Country: IR (occurrence: IR)
  Receive Date: 20210329
  Receipt Date: 20210329
  Transmission Date: 20210420
  Serious: Yes (Other)
  Sender: FDA-Public Use
  Company Number: IR-RISING PHARMA HOLDINGS, INC.-2021RIS000014

PATIENT
  Age: 24 Year
  Sex: Female

DRUGS (2)
  1. BIPERIDEN [Concomitant]
     Active Substance: BIPERIDEN
     Indication: SCHIZOPHRENIA
     Dosage: 4 MILLIGRAM, QD
     Route: 065
  2. RISPERIDONE. [Suspect]
     Active Substance: RISPERIDONE
     Indication: SCHIZOPHRENIA
     Dosage: 6 MILLIGRAM, QD
     Route: 065

REACTIONS (1)
  - Deep vein thrombosis [Recovered/Resolved]
